FAERS Safety Report 4969258-4 (Version None)
Quarter: 2006Q2

REPORT INFORMATION
  Report Type: 
  Country: None (occurrence: None)
  Receive Date: 20060405
  Receipt Date: 20060327
  Transmission Date: 20061013
  Serious: Yes (Other)
  Sender: FDA-Public Use
  Company Number: 2006042009

PATIENT
  Sex: Female

DRUGS (6)
  1. NEURONTIN [Suspect]
     Indication: NEURALGIA
  2. NEURONTIN [Suspect]
     Indication: PAIN
  3. ULTRAM [Suspect]
     Indication: NEURALGIA
  4. ULTRAM [Suspect]
     Indication: PAIN
  5. DURAGESIC-100 [Suspect]
     Indication: NEURALGIA
  6. DURAGESIC-100 [Suspect]
     Indication: PAIN

REACTIONS (1)
  - RENAL FAILURE [None]
